FAERS Safety Report 4551926-X (Version None)
Quarter: 2004Q4

REPORT INFORMATION
  Report Type: 
  Country: None (occurrence: None)
  Receive Date: 20041217
  Receipt Date: 20040824
  Transmission Date: 20050328
  Serious: No
  Sender: FDA-Public Use
  Company Number: 2004-BP-07169BP

PATIENT
  Sex: Male

DRUGS (5)
  1. SPIRIVA [Suspect]
     Indication: CHRONIC OBSTRUCTIVE AIRWAYS DISEASE
     Dosage: 18 MCG (18 MCG, 18 MCG DAILY), IH
     Route: 055
     Dates: start: 20040701, end: 20040801
  2. PREDNISONE [Suspect]
     Indication: CHRONIC OBSTRUCTIVE AIRWAYS DISEASE
     Dosage: 5 MG (5 MG, 5 MG QD), PO
     Route: 048
     Dates: start: 20030801, end: 20040801
  3. ALBUTEROL + IPRATROPIUM (SALBUTAMOL W/IPRATROPIUM) [Concomitant]
  4. ALBUTEROL [Concomitant]
  5. DIFIL G 200 (MUCOSYL) [Concomitant]

REACTIONS (2)
  - CANDIDIASIS [None]
  - DYSPNOEA EXACERBATED [None]
